FAERS Safety Report 4319052-2 (Version None)
Quarter: 2004Q1

REPORT INFORMATION
  Report Type: 
  Country: None (occurrence: None)
  Receive Date: 20040316
  Receipt Date: 20040305
  Transmission Date: 20041129
  Serious: Yes (Life-Threatening)
  Sender: FDA-Public Use
  Company Number: 2004AP01285

PATIENT
  Age: 52 Year
  Sex: Female

DRUGS (13)
  1. IRESSA [Suspect]
     Indication: NON-SMALL CELL LUNG CANCER RECURRENT
     Dosage: 250 MG DAILY PO
     Route: 048
     Dates: start: 20030623, end: 20030711
  2. IRESSA [Suspect]
     Indication: NON-SMALL CELL LUNG CANCER RECURRENT
     Dosage: 250 MG DAILY PO
     Route: 048
     Dates: start: 20030728
  3. DUROTEP JANSSEN [Concomitant]
  4. ANPEC [Concomitant]
  5. GASTER [Concomitant]
  6. DIAZEPAM [Concomitant]
  7. PENTICILLIN [Concomitant]
  8. HALCION [Concomitant]
  9. JUZENTAIHOTO [Concomitant]
  10. NEO-MINOPHAGEN C [Concomitant]
  11. GLYCYRON [Concomitant]
  12. TAXOL [Concomitant]
  13. PARAPLATIN [Concomitant]

REACTIONS (5)
  - C-REACTIVE PROTEIN INCREASED [None]
  - INFECTION [None]
  - NEUTROPHIL TOXIC GRANULATION PRESENT [None]
  - PYREXIA [None]
  - WHITE BLOOD CELL COUNT INCREASED [None]
